FAERS Safety Report 9936039 (Version 4)
Quarter: 2014Q2

REPORT INFORMATION
  Report Type: Spontaneous
  Country: US (occurrence: US)
  Receive Date: 20140228
  Receipt Date: 20140416
  Transmission Date: 20141212
  Serious: Yes (Death, Hospitalization, Other)
  Sender: FDA-Public Use
  Company Number: US-GILEAD-2014-0095636

PATIENT
  Sex: Male

DRUGS (2)
  1. LETAIRIS [Suspect]
     Indication: PULMONARY HYPERTENSION
     Dosage: 10 MG, UNK
     Route: 065
     Dates: start: 20120104
  2. LETAIRIS [Suspect]
     Indication: CONNECTIVE TISSUE DISORDER
     Dates: start: 20120104, end: 20140304

REACTIONS (4)
  - Cardiac failure congestive [Unknown]
  - Unevaluable event [Unknown]
  - Sepsis [Fatal]
  - Dyspnoea [Unknown]
